FAERS Safety Report 4732136-X (Version None)
Quarter: 2005Q3

REPORT INFORMATION
  Report Type: 
  Country: None (occurrence: None)
  Receive Date: 20050725
  Receipt Date: 19960808
  Transmission Date: 20060218
  Serious: Yes (Other)
  Sender: FDA-Public Use
  Company Number: KII-1996-0015267

PATIENT
  Sex: Male

DRUGS (1)
  1. MS CONTIN [Suspect]
     Indication: PAIN

REACTIONS (2)
  - DRUG ABUSER [None]
  - INADEQUATE ANALGESIA [None]
